FAERS Safety Report 18658614 (Version 4)
Quarter: 2021Q3

REPORT INFORMATION
  Report Type: Spontaneous
  Country: GB (occurrence: GB)
  Receive Date: 20201224
  Receipt Date: 20210818
  Transmission Date: 20211014
  Serious: Yes (Other)
  Sender: FDA-Public Use
  Company Number: GB-BIOVITRUM-2020GB7877

PATIENT
  Age: 62 Year
  Sex: Female

DRUGS (23)
  1. ORFADIN [Suspect]
     Active Substance: NITISINONE
     Dates: start: 2017
  2. CALCICHEW [Concomitant]
     Active Substance: CALCIUM CARBONATE
     Dates: start: 2015
  3. SYMBICORT [Concomitant]
     Active Substance: BUDESONIDE\FORMOTEROL FUMARATE DIHYDRATE
     Dates: start: 2016
  4. ORFADIN [Suspect]
     Active Substance: NITISINONE
     Indication: ALKAPTONURIA
     Dates: start: 2015
  5. ELTROXIN [Concomitant]
     Active Substance: LEVOTHYROXINE
     Dates: start: 2017
  6. FOLIC ACID. [Concomitant]
     Active Substance: FOLIC ACID
     Dates: start: 2016
  7. SALAMEL [Concomitant]
  8. ORFADIN [Suspect]
     Active Substance: NITISINONE
     Dates: start: 2018
  9. COLECALCIFEROL [Concomitant]
     Active Substance: CHOLECALCIFEROL
     Dates: start: 2016
  10. ZORCLONE [Concomitant]
     Dosage: 3.5 (UNITS NOT REPORTED)
     Dates: start: 2016
  11. ELTROXIN [Concomitant]
     Active Substance: LEVOTHYROXINE
     Dates: start: 2016
  12. ORLANZAPINE [Concomitant]
     Dates: start: 2017
  13. ORLANZAPINE [Concomitant]
     Dates: start: 2018
  14. CITALOPRAM [Concomitant]
     Active Substance: CITALOPRAM HYDROBROMIDE
     Dates: start: 2016
  15. AMITRYPTYLINE [Concomitant]
     Active Substance: AMITRIPTYLINE
     Dates: start: 2018
  16. VIT D [Concomitant]
     Active Substance: VITAMIN D NOS
     Dates: start: 2018
  17. FOLIC ACID. [Concomitant]
     Active Substance: FOLIC ACID
     Dates: start: 2018
  18. TEVANATE [Concomitant]
     Active Substance: ALENDRONATE SODIUM
     Dates: start: 2016
  19. ELTROXIN [Concomitant]
     Active Substance: LEVOTHYROXINE
     Dates: start: 2015
  20. FOLIC ACID. [Concomitant]
     Active Substance: FOLIC ACID
     Dates: start: 2017
  21. SYMBICORT [Concomitant]
     Active Substance: BUDESONIDE\FORMOTEROL FUMARATE DIHYDRATE
     Dosage: 400/12
     Dates: start: 2017
  22. ORFADIN [Suspect]
     Active Substance: NITISINONE
     Dates: start: 2016
  23. FOLIC ACID. [Concomitant]
     Active Substance: FOLIC ACID
     Dates: start: 2015

REACTIONS (3)
  - Amino acid level increased [Not Recovered/Not Resolved]
  - Lenticular opacities [Not Recovered/Not Resolved]
  - Cataract [Unknown]

NARRATIVE: CASE EVENT DATE: 2015
